FAERS Safety Report 10142504 (Version 1)
Quarter: 2014Q2

REPORT INFORMATION
  Report Type: Report from Study
  Country: US (occurrence: US)
  Receive Date: 20140430
  Receipt Date: 20140430
  Transmission Date: 20141212
  Serious: Yes (Hospitalization, Other)
  Sender: FDA-Public Use
  Company Number: US-ROCHE-1386258

PATIENT
  Age: 8 Year
  Sex: Male
  Weight: 22.9 kg

DRUGS (11)
  1. CELLCEPT [Suspect]
     Indication: PRODUCT USED FOR UNKNOWN INDICATION
     Route: 048
  2. RAPAMUNE [Concomitant]
     Route: 048
  3. APRESOLIN [Concomitant]
     Dosage: 1 TABLET
     Route: 048
  4. VITAMIN D3 [Concomitant]
     Route: 048
  5. VITAMIN E [Concomitant]
     Route: 048
  6. ACTIGALL [Concomitant]
     Route: 048
  7. GAS-X [Concomitant]
     Dosage: AS NEEDED
     Route: 065
  8. OMEPRAZOLE [Concomitant]
     Route: 065
  9. LASIX [Concomitant]
     Route: 065
  10. DELTASONE [Concomitant]
     Dosage: 4 TABLETS
     Route: 048
  11. COREG [Concomitant]
     Route: 048

REACTIONS (12)
  - Kidney transplant rejection [Unknown]
  - Capillaritis [Unknown]
  - Leukopenia [Unknown]
  - Osteoporosis [Unknown]
  - Hypertension [Unknown]
  - Limb asymmetry [Unknown]
  - Cholecystectomy [Unknown]
  - Otitis media [Unknown]
  - Liver palpable subcostal [Unknown]
  - Abdominal pain [Unknown]
  - Flatulence [Unknown]
  - Faeces pale [Unknown]
